FAERS Safety Report 23129544 (Version 2)
Quarter: 2023Q4

REPORT INFORMATION
  Report Type: Spontaneous
  Country: JP (occurrence: JP)
  Receive Date: 20231031
  Receipt Date: 20231107
  Transmission Date: 20240109
  Serious: Yes (Other)
  Sender: FDA-Public Use
  Company Number: JP-BAYER-2023A153421

PATIENT
  Age: 48 Year
  Sex: Female

DRUGS (1)
  1. MIRENA [Suspect]
     Active Substance: LEVONORGESTREL
     Indication: Menstrual disorder
     Dosage: 20?G/DAY
     Route: 015
     Dates: start: 2019

REACTIONS (11)
  - Embedded device [None]
  - Device breakage [None]
  - Complication of device removal [None]
  - Menopausal symptoms [None]
  - Fatigue [None]
  - Arthralgia [None]
  - Unexpected vaginal bleeding on hormonal IUD [Recovered/Resolved]
  - Abdominal pain lower [Recovered/Resolved]
  - Procedural pain [None]
  - Product communication issue [None]
  - Off label use [None]

NARRATIVE: CASE EVENT DATE: 20231026
